FAERS Safety Report 13811110 (Version 1)
Quarter: 2017Q3

REPORT INFORMATION
  Report Type: Spontaneous
  Country: FR (occurrence: FR)
  Receive Date: 20170728
  Receipt Date: 20170728
  Transmission Date: 20171127
  Serious: Yes (Hospitalization, Other)
  Sender: FDA-Public Use
  Company Number: FR-MERCK KGAA-2023901

PATIENT
  Age: 70 Year
  Sex: Female

DRUGS (4)
  1. LEVOTHYROX 25 [Suspect]
     Active Substance: LEVOTHYROXINE SODIUM
     Dates: start: 20170711, end: 20170712
  2. LEVOTHYROX 25 NF [Suspect]
     Active Substance: LEVOTHYROXINE SODIUM
     Dates: start: 20170713
  3. LEVOTHYROX 25 [Suspect]
     Active Substance: LEVOTHYROXINE SODIUM
     Dates: start: 2017, end: 2017
  4. NOVOTHYROX [Suspect]
     Active Substance: LEVOTHYROXINE SODIUM
     Indication: HYPOTHYROIDISM
     Dates: start: 2017

REACTIONS (9)
  - Fatigue [Not Recovered/Not Resolved]
  - Blood thyroid stimulating hormone abnormal [Unknown]
  - Weight increased [Unknown]
  - Hot flush [Recovered/Resolved]
  - Syncope [Unknown]
  - Nausea [Not Recovered/Not Resolved]
  - Muscle tightness [Not Recovered/Not Resolved]
  - Mental impairment [Not Recovered/Not Resolved]
  - Hyperhidrosis [Unknown]

NARRATIVE: CASE EVENT DATE: 2017
